FAERS Safety Report 15285031 (Version 1)
Quarter: 2018Q3

REPORT INFORMATION
  Report Type: Spontaneous
  Country: US (occurrence: US)
  Receive Date: 20180801
  Receipt Date: 20180801
  Transmission Date: 20181010
  Serious: Yes (Disabling)
  Sender: FDA-Public Use
  Company Number: None

PATIENT
  Age: 63 Year
  Sex: Female
  Weight: 63 kg

DRUGS (9)
  1. CALCIUM VITAMIN D [Concomitant]
     Active Substance: CALCIUM\VITAMIN D
  2. BACLOFEN. [Suspect]
     Active Substance: BACLOFEN
     Indication: MULTIPLE SCLEROSIS
     Dosage: ?          QUANTITY:1 TABLET(S);?
     Route: 048
     Dates: start: 20130201, end: 20180801
  3. COPAXONE [Concomitant]
     Active Substance: GLATIRAMER ACETATE
  4. CRANBERRY CONCENTRATE TABS [Concomitant]
  5. LEVOTHYROXIN [Concomitant]
     Active Substance: LEVOTHYROXINE
  6. LODSARTIN POTASSIUM [Concomitant]
  7. MULTI?VITAMIN [Concomitant]
     Active Substance: .ALPHA.-TOCOPHEROL ACETATE, DL-\ASCORBIC ACID\CYANOCOBALAMIN\FLUORIDE ION\FOLIC ACID\NIACIN\PYRIDOXINE\RIBOFLAVIN\THIAMINE\VITAMIN A\VITAMIN D
  8. VITAMIN C [Concomitant]
     Active Substance: ASCORBIC ACID
  9. AMYRA [Concomitant]

REACTIONS (8)
  - Muscle rigidity [None]
  - Exercise lack of [None]
  - Pain in extremity [None]
  - Gait disturbance [None]
  - Drug ineffective [None]
  - Product substitution issue [None]
  - Muscle spasticity [None]
  - Condition aggravated [None]

NARRATIVE: CASE EVENT DATE: 20180716
